FAERS Safety Report 9820039 (Version 1)
Quarter: 2013Q4

REPORT INFORMATION
  Report Type: Spontaneous
  Country: US (occurrence: None)
  Receive Date: 20131223
  Receipt Date: 20131223
  Transmission Date: 20140711
  Serious: No
  Sender: FDA-Public Use
  Company Number: 218354

PATIENT
  Sex: 0

DRUGS (1)
  1. PICATO [Suspect]
     Indication: PRECANCEROUS SKIN LESION
     Dates: start: 20120702, end: 20120704

REACTIONS (4)
  - Application site pain [None]
  - Application site pain [None]
  - Application site pruritus [None]
  - Application site pruritus [None]
